FAERS Safety Report 22253582 (Version 1)
Quarter: 2023Q2

REPORT INFORMATION
  Report Type: Spontaneous
  Country: CA (occurrence: CA)
  Receive Date: 20230426
  Receipt Date: 20230426
  Transmission Date: 20230721
  Serious: Yes (Hospitalization, Other)
  Sender: FDA-Public Use
  Company Number: CA-AUROBINDO-AUR-APL-2023-031195

PATIENT
  Age: 44 Year
  Sex: Female
  Weight: 63 kg

DRUGS (69)
  1. ALENDRONIC ACID [Suspect]
     Active Substance: ALENDRONIC ACID
     Indication: Product used for unknown indication
     Dosage: UNK
     Route: 048
  2. AMOXICILLIN [Suspect]
     Active Substance: AMOXICILLIN
     Indication: Product used for unknown indication
     Dosage: UNK
     Route: 065
  3. CELECOXIB [Suspect]
     Active Substance: CELECOXIB
     Indication: Product used for unknown indication
     Dosage: UNK
     Route: 065
  4. METHOTREXATE [Suspect]
     Active Substance: METHOTREXATE
     Indication: Rheumatoid arthritis
     Dosage: 20 MILLIGRAM
     Route: 048
  5. METHOTREXATE [Suspect]
     Active Substance: METHOTREXATE
     Dosage: 20 MILLIGRAM, EVERY WEEK
     Route: 048
  6. METHOTREXATE [Suspect]
     Active Substance: METHOTREXATE
     Dosage: 17.5 MILLIGRAM
     Route: 065
  7. METHOTREXATE [Suspect]
     Active Substance: METHOTREXATE
     Dosage: 25 MILLIGRAM, EVERY WEEK
     Route: 065
  8. PREGABALIN [Suspect]
     Active Substance: PREGABALIN
     Indication: Rheumatoid arthritis
     Dosage: 150 MILLIGRAM, ONCE A DAY
     Route: 048
  9. PREGABALIN [Suspect]
     Active Substance: PREGABALIN
     Indication: Fibromyalgia
  10. PREGABALIN [Suspect]
     Active Substance: PREGABALIN
     Indication: Rheumatoid arthritis
     Dosage: 150 MILLIGRAM, TWO TIMES A DAY
     Route: 048
  11. PREGABALIN [Suspect]
     Active Substance: PREGABALIN
     Indication: Fibromyalgia
     Dosage: 300 MILLIGRAM, ONCE A DAY
     Route: 048
  12. AZATHIOPRINE [Suspect]
     Active Substance: AZATHIOPRINE
     Indication: Rheumatoid arthritis
     Dosage: 150 MILLIGRAM, ONCE A DAY
     Route: 048
  13. AZATHIOPRINE [Suspect]
     Active Substance: AZATHIOPRINE
     Dosage: 150 MILLIGRAM, ONCE A DAY
     Route: 065
  14. AZATHIOPRINE [Suspect]
     Active Substance: AZATHIOPRINE
     Dosage: 300 MILLIGRAM
     Route: 048
  15. DEPO-MEDROL [Suspect]
     Active Substance: METHYLPREDNISOLONE ACETATE
     Indication: Rheumatoid arthritis
     Dosage: UNK
     Route: 065
  16. DEPO-MEDROL [Suspect]
     Active Substance: METHYLPREDNISOLONE ACETATE
     Dosage: 180 MILLIGRAM, ONCE A DAY
     Route: 014
  17. DEPO-MEDROL [Suspect]
     Active Substance: METHYLPREDNISOLONE ACETATE
     Dosage: UNK
     Route: 014
  18. ENBREL [Suspect]
     Active Substance: ETANERCEPT
     Indication: Rheumatoid arthritis
     Dosage: 40 MILLIGRAM, EVERY WEEK
     Route: 058
  19. ENBREL [Suspect]
     Active Substance: ETANERCEPT
     Dosage: 50 MILLIGRAM, ONCE A DAY
     Route: 065
  20. ENBREL [Suspect]
     Active Substance: ETANERCEPT
     Dosage: 50 MILLIGRAM, EVERY WEEK
     Route: 058
  21. ENBREL [Suspect]
     Active Substance: ETANERCEPT
     Dosage: 50 MICROGRAM, ONCE A DAY
     Route: 058
  22. ENBREL [Suspect]
     Active Substance: ETANERCEPT
     Dosage: 50 GRAM, EVERY WEEK
     Route: 058
  23. ESOMEPRAZOLE MAGNESIUM [Suspect]
     Active Substance: ESOMEPRAZOLE MAGNESIUM
     Indication: Rheumatoid arthritis
     Dosage: UNK
     Route: 065
  24. HUMIRA [Suspect]
     Active Substance: ADALIMUMAB
     Indication: Rheumatoid arthritis
     Dosage: 40 MILLIGRAM
     Route: 058
  25. HUMIRA [Suspect]
     Active Substance: ADALIMUMAB
     Indication: Drug therapy
     Dosage: UNK
     Route: 058
  26. IMURAN [Suspect]
     Active Substance: AZATHIOPRINE
     Indication: Product used for unknown indication
     Dosage: 150 MILLIGRAM, TWO TIMES A DAY
     Route: 048
  27. IMURAN [Suspect]
     Active Substance: AZATHIOPRINE
     Dosage: 150 MILLIGRAM
     Route: 065
  28. LYRICA [Suspect]
     Active Substance: PREGABALIN
     Indication: Rheumatoid arthritis
     Dosage: 150 MILLIGRAM, TWO TIMES A DAY
     Route: 048
  29. LYRICA [Suspect]
     Active Substance: PREGABALIN
     Dosage: 300 MILLIGRAM, ONCE A DAY
     Route: 048
  30. METHOTREXATE [Suspect]
     Active Substance: METHOTREXATE
     Indication: Rheumatoid arthritis
     Dosage: 20 MILLIGRAM, EVERY WEEK
     Route: 058
  31. METHOTREXATE [Suspect]
     Active Substance: METHOTREXATE
     Dosage: 17.5 MILLIGRAM
     Route: 065
  32. METHYLPREDNISOLONE ACETATE [Suspect]
     Active Substance: METHYLPREDNISOLONE ACETATE
     Indication: Rheumatoid arthritis
     Dosage: UNK, ONCE A DAY
     Route: 014
  33. METHYLPREDNISOLONE ACETATE [Suspect]
     Active Substance: METHYLPREDNISOLONE ACETATE
     Indication: Inflammation
     Dosage: UNK
     Route: 065
  34. MELOXICAM [Suspect]
     Active Substance: MELOXICAM
     Indication: Rheumatoid arthritis
     Dosage: 150 MILLIGRAM
     Route: 065
  35. MELOXICAM [Suspect]
     Active Substance: MELOXICAM
     Dosage: 150 MILLIGRAM, ONCE A DAY
     Route: 065
  36. NAPROXEN SODIUM [Suspect]
     Active Substance: NAPROXEN SODIUM
     Indication: Rheumatoid arthritis
     Dosage: 500 MILLIGRAM, ONCE A DAY
     Route: 048
  37. NAPROXEN SODIUM [Suspect]
     Active Substance: NAPROXEN SODIUM
     Indication: Inflammation
     Dosage: 1000 MILLIGRAM, ONCE A DAY
     Route: 048
  38. NAPROXEN SODIUM [Suspect]
     Active Substance: NAPROXEN SODIUM
     Indication: Bursitis
     Dosage: 1000 MILLIGRAM
     Route: 048
  39. NAPROXEN SODIUM [Suspect]
     Active Substance: NAPROXEN SODIUM
     Indication: Back pain
     Dosage: 250 MILLIGRAM
     Route: 048
  40. NAPROXEN SODIUM [Suspect]
     Active Substance: NAPROXEN SODIUM
     Dosage: 500 MILLIGRAM, TWO TIMES A DAY
     Route: 048
  41. NAPROXEN SODIUM [Suspect]
     Active Substance: NAPROXEN SODIUM
     Dosage: 1000 MILLIGRAM, ONCE A DAY
     Route: 065
  42. NAPROXEN SODIUM [Suspect]
     Active Substance: NAPROXEN SODIUM
     Dosage: 250 MILLIGRAM, TWO TIMES A DAY
     Route: 048
  43. NAPROXEN SODIUM [Suspect]
     Active Substance: NAPROXEN SODIUM
     Dosage: 500 MILLIGRAM
     Route: 048
  44. PANTOPRAZOLE SODIUM [Suspect]
     Active Substance: PANTOPRAZOLE SODIUM
     Indication: Product used for unknown indication
     Dosage: UNK
     Route: 048
  45. PANTOPRAZOLE SODIUM [Suspect]
     Active Substance: PANTOPRAZOLE SODIUM
     Dosage: UNK, ONCE A DAY
     Route: 065
  46. PANTOPRAZOLE SODIUM [Suspect]
     Active Substance: PANTOPRAZOLE SODIUM
     Dosage: UNK
     Route: 065
  47. PANTOPRAZOLE SODIUM [Suspect]
     Active Substance: PANTOPRAZOLE SODIUM
     Indication: Product used for unknown indication
     Dosage: UNK
     Route: 048
  48. PREDNISONE [Suspect]
     Active Substance: PREDNISONE
     Indication: Rheumatoid arthritis
     Dosage: 150 MILLIGRAM, ONCE A DAY
     Route: 065
  49. PREDNISONE [Suspect]
     Active Substance: PREDNISONE
     Indication: Rheumatoid arthritis
     Dosage: 15 MILLIGRAM, ONCE A DAY
     Route: 065
  50. PREDNISONE [Suspect]
     Active Substance: PREDNISONE
     Dosage: UNK
     Route: 048
  51. RANITIDINE HYDROCHLORIDE [Suspect]
     Active Substance: RANITIDINE HYDROCHLORIDE
     Indication: Product used for unknown indication
     Dosage: 300 MILLIGRAM, EVERY WEEK
     Route: 048
  52. RANITIDINE HYDROCHLORIDE [Suspect]
     Active Substance: RANITIDINE HYDROCHLORIDE
     Dosage: 300 MILLIGRAM, ONCE A DAY
     Route: 065
  53. RANITIDINE HYDROCHLORIDE [Suspect]
     Active Substance: RANITIDINE HYDROCHLORIDE
     Dosage: 150 MILLIGRAM, TWO TIMES A DAY
     Route: 048
  54. RANITIDINE HYDROCHLORIDE [Suspect]
     Active Substance: RANITIDINE HYDROCHLORIDE
     Dosage: 15 MILLIGRAM, TWO TIMES A DAY
     Route: 048
  55. RANITIDINE HYDROCHLORIDE [Suspect]
     Active Substance: RANITIDINE HYDROCHLORIDE
     Dosage: UNK
     Route: 065
  56. RANITIDINE HYDROCHLORIDE [Suspect]
     Active Substance: RANITIDINE HYDROCHLORIDE
     Dosage: 300 MILLIGRAM, ONCE A DAY
     Route: 048
  57. RITUXIMAB [Suspect]
     Active Substance: RITUXIMAB
     Indication: Rheumatoid arthritis
     Dosage: UNK
     Route: 042
  58. RITUXIMAB [Suspect]
     Active Substance: RITUXIMAB
     Dosage: UNK
     Route: 065
  59. SULFASALAZINE [Suspect]
     Active Substance: SULFASALAZINE
     Indication: Rheumatoid arthritis
     Dosage: 1 MILLIGRAM, ONCE A DAY
     Route: 048
  60. SULFASALAZINE [Suspect]
     Active Substance: SULFASALAZINE
     Dosage: 1000 MILLIGRAM, ONCE A DAY
     Route: 048
  61. SULFASALAZINE [Suspect]
     Active Substance: SULFASALAZINE
     Dosage: 1000 MILLIGRAM, TWO TIMES A DAY
     Route: 065
  62. SULFASALAZINE [Suspect]
     Active Substance: SULFASALAZINE
     Dosage: 2000 MILLIGRAM
     Route: 065
  63. SULFASALAZINE [Suspect]
     Active Substance: SULFASALAZINE
     Dosage: 1 GRAM, ONCE A DAY
     Route: 048
  64. SULFASALAZINE [Suspect]
     Active Substance: SULFASALAZINE
     Dosage: 1000 MILLIGRAM, EVERY WEEK
     Route: 048
  65. XELJANZ [Suspect]
     Active Substance: TOFACITINIB CITRATE
     Indication: Rheumatoid arthritis
     Dosage: 10 MILLIGRAM
     Route: 048
  66. XELJANZ [Suspect]
     Active Substance: TOFACITINIB CITRATE
     Dosage: 2 DOSAGE FORM, ONCE A DAY
     Route: 048
  67. XELJANZ [Suspect]
     Active Substance: TOFACITINIB CITRATE
     Dosage: 10 MILLIGRAM, ONCE A DAY
     Route: 048
  68. XELJANZ [Suspect]
     Active Substance: TOFACITINIB CITRATE
     Dosage: 5 MILLIGRAM, TWO TIMES A DAY
     Route: 048
  69. XELJANZ [Suspect]
     Active Substance: TOFACITINIB CITRATE
     Dosage: 2 MILLIGRAM, TWO TIMES A DAY
     Route: 048

REACTIONS (12)
  - Arthropathy [Not Recovered/Not Resolved]
  - Condition aggravated [Not Recovered/Not Resolved]
  - Drug hypersensitivity [Not Recovered/Not Resolved]
  - Gastrointestinal toxicity [Not Recovered/Not Resolved]
  - Hepatotoxicity [Not Recovered/Not Resolved]
  - Joint injury [Not Recovered/Not Resolved]
  - Joint stiffness [Not Recovered/Not Resolved]
  - Quality of life decreased [Not Recovered/Not Resolved]
  - Skin ulcer [Not Recovered/Not Resolved]
  - Swelling [Not Recovered/Not Resolved]
  - Therapeutic product effect incomplete [Not Recovered/Not Resolved]
  - Therapy non-responder [Not Recovered/Not Resolved]
